FAERS Safety Report 6936879-9 (Version None)
Quarter: 2010Q3

REPORT INFORMATION
  Report Type: 
  Country: None (occurrence: None)
  Receive Date: 20100823
  Receipt Date: 20100812
  Transmission Date: 20110219
  Serious: Yes (Hospitalization)
  Sender: FDA-Public Use
  Company Number: CA-JNJFOC-20100804778

PATIENT
  Sex: Female
  Weight: 88.6 kg

DRUGS (7)
  1. REMICADE [Suspect]
     Indication: ANKYLOSING SPONDYLITIS
     Route: 042
  2. REMICADE [Suspect]
     Route: 042
  3. VALIUM [Concomitant]
     Indication: DEPRESSION
     Route: 048
  4. ADVIL LIQUI-GELS [Concomitant]
     Indication: ANKYLOSING SPONDYLITIS
     Route: 048
  5. FLEXERIL [Concomitant]
     Indication: NECK PAIN
     Route: 048
  6. LYRICA [Concomitant]
     Indication: NECK PAIN
     Route: 048
  7. VOLTAREN [Concomitant]
     Route: 048

REACTIONS (1)
  - BREAST HYPERPLASIA [None]
